FAERS Safety Report 19394902 (Version 1)
Quarter: 2021Q2

REPORT INFORMATION
  Report Type: Spontaneous
  Country: US (occurrence: US)
  Receive Date: 20210609
  Receipt Date: 20210609
  Transmission Date: 20210717
  Serious: No
  Sender: FDA-Public Use
  Company Number: US-TEVA-2021-US-1915155

PATIENT
  Sex: Female

DRUGS (1)
  1. PREGABALIN. [Suspect]
     Active Substance: PREGABALIN
     Indication: DIFFUSE IDIOPATHIC SKELETAL HYPEROSTOSIS
     Route: 048

REACTIONS (2)
  - Chills [Unknown]
  - Hot flush [Unknown]
